FAERS Safety Report 9175065 (Version 2)
Quarter: 2013Q2

REPORT INFORMATION
  Report Type: Spontaneous
  Country: US (occurrence: US)
  Receive Date: 20130320
  Receipt Date: 20130412
  Transmission Date: 20140414
  Serious: Yes (Death, Hospitalization)
  Sender: FDA-Public Use
  Company Number: US-BMSGILMSD-2013-0070432

PATIENT
  Age: 34 Year
  Sex: Male

DRUGS (4)
  1. ATRIPLA [Suspect]
     Indication: HIV INFECTION
  2. VALGANCICLOVIR [Suspect]
     Indication: KAPOSI^S SARCOMA
  3. DOXORUBICIN [Suspect]
     Indication: KAPOSI^S SARCOMA
  4. VINBLASTIN [Suspect]
     Indication: KAPOSI^S SARCOMA

REACTIONS (3)
  - Sepsis [Fatal]
  - Pneumonia [Not Recovered/Not Resolved]
  - Immune reconstitution inflammatory syndrome [Not Recovered/Not Resolved]
